FAERS Safety Report 25423393 (Version 1)
Quarter: 2025Q2

REPORT INFORMATION
  Report Type: Spontaneous
  Country: CN (occurrence: CN)
  Receive Date: 20250611
  Receipt Date: 20250611
  Transmission Date: 20250717
  Serious: Yes (Other)
  Sender: BAYER HEALTHCARE PHARMACEUTICALS INC.
  Company Number: CN-BAYER-2025A075612

PATIENT
  Age: 14 Year
  Sex: Female
  Weight: 95 kg

DRUGS (1)
  1. ULTRAVIST [Suspect]
     Active Substance: IOPROMIDE
     Indication: Computerised tomogram heart
     Route: 042
     Dates: start: 20250418, end: 20250418

REACTIONS (9)
  - Anaphylactic shock [Recovering/Resolving]
  - Syncope [Recovered/Resolved]
  - Amaurosis [Recovering/Resolving]
  - Blood pressure decreased [Recovered/Resolved]
  - Rash pruritic [Recovering/Resolving]
  - Flushing [Recovering/Resolving]
  - Heart rate increased [Recovered/Resolved]
  - Respiratory rate increased [None]
  - Pallor [Recovering/Resolving]

NARRATIVE: CASE EVENT DATE: 20250418
